FAERS Safety Report 20871937 (Version 2)
Quarter: 2022Q2

REPORT INFORMATION
  Report Type: Spontaneous
  Country: RU (occurrence: RU)
  Receive Date: 20220525
  Receipt Date: 20220608
  Transmission Date: 20220721
  Serious: Yes (Other)
  Sender: FDA-Public Use
  Company Number: RU-SA-2022SA184542

PATIENT
  Sex: Male

DRUGS (12)
  1. PRALUENT [Suspect]
     Active Substance: ALIROCUMAB
     Indication: Product used for unknown indication
     Dosage: 75 MG
     Route: 058
     Dates: start: 20220408, end: 20220422
  2. URSODIOL [Concomitant]
     Active Substance: URSODIOL
     Indication: Steatohepatitis
     Dosage: 1000 MG, QD
     Route: 048
     Dates: start: 20210101
  3. BISOPROLOL FUMARATE [Concomitant]
     Active Substance: BISOPROLOL FUMARATE
     Dosage: 7.5 MG
     Route: 048
  4. BISOPROLOL FUMARATE [Concomitant]
     Active Substance: BISOPROLOL FUMARATE
     Dosage: 7.5 MG
     Route: 048
  5. ARIFAM [Concomitant]
     Dosage: UNK (10/1.5 MG)
     Route: 048
  6. ARIFAM [Concomitant]
     Dosage: UNK (10/1.5 MG)
     Route: 048
  7. HYPOSART [Concomitant]
     Dosage: 32 MG
     Route: 048
  8. HYPOSART [Concomitant]
     Dosage: 32 MG
     Route: 048
  9. CLOPIDOGREL [Concomitant]
     Active Substance: CLOPIDOGREL BISULFATE
     Dosage: 75 MG
     Route: 048
  10. CLOPIDOGREL [Concomitant]
     Active Substance: CLOPIDOGREL BISULFATE
     Dosage: 75 MG
     Route: 048
  11. OTRIO [Concomitant]
     Dosage: 10 MG
     Route: 048
  12. OTRIO [Concomitant]
     Dosage: 10 MG
     Route: 048

REACTIONS (4)
  - Atrial fibrillation [Unknown]
  - Muscular weakness [Unknown]
  - Tachycardia [Unknown]
  - Dyspnoea [Unknown]

NARRATIVE: CASE EVENT DATE: 20220401
